FAERS Safety Report 24885059 (Version 1)
Quarter: 2025Q1

REPORT INFORMATION
  Report Type: Spontaneous
  Country: CN (occurrence: CN)
  Receive Date: 20250124
  Receipt Date: 20250124
  Transmission Date: 20250409
  Serious: Yes (Other)
  Sender: PFIZER
  Company Number: CN-PFIZER INC-PV202500008444

PATIENT
  Age: 2 Year
  Sex: Male
  Weight: 13.5 kg

DRUGS (4)
  1. CYTARABINE [Suspect]
     Active Substance: CYTARABINE
     Indication: Acute lymphocytic leukaemia
     Dosage: 25 MG, WEEKLY
     Route: 037
     Dates: start: 20241216, end: 20250114
  2. METHOTREXATE SODIUM [Suspect]
     Active Substance: METHOTREXATE SODIUM
     Indication: Acute lymphocytic leukaemia
     Dosage: 9 MG, WEEKLY
     Route: 037
     Dates: start: 20241216, end: 20250114
  3. DEXAMETHASONE SODIUM PHOSPHATE [Suspect]
     Active Substance: DEXAMETHASONE SODIUM PHOSPHATE
     Indication: Acute lymphocytic leukaemia
     Dosage: 2.5 MG, WEEKLY
     Route: 037
     Dates: start: 20241216, end: 20250114
  4. SODIUM CHLORIDE [Concomitant]
     Active Substance: SODIUM CHLORIDE
     Indication: Vehicle solution use

REACTIONS (4)
  - Cerebral atrophy [Unknown]
  - Indifference [Unknown]
  - Language disorder [Unknown]
  - Hypokinesia [Unknown]

NARRATIVE: CASE EVENT DATE: 20250114
